FAERS Safety Report 7731843-4 (Version None)
Quarter: 2011Q3

REPORT INFORMATION
  Report Type: 
  Country: None (occurrence: None)
  Receive Date: 20110906
  Receipt Date: 20110711
  Transmission Date: 20111222
  Serious: No
  Sender: FDA-Public Use
  Company Number: US-AMGEN-USASP2011035057

PATIENT
  Sex: Female

DRUGS (4)
  1. ACYCLOVIR [Concomitant]
  2. LEVOTHYROXINE SODIUM [Concomitant]
  3. PROLIA [Suspect]
     Indication: OSTEOPOROSIS POSTMENOPAUSAL
     Dosage: 60 MG, Q6MO
     Dates: start: 20110124
  4. CALCIUM CARBONATE [Concomitant]

REACTIONS (4)
  - SWELLING FACE [None]
  - FACIAL PAIN [None]
  - SKIN EXFOLIATION [None]
  - ACNE [None]
